FAERS Safety Report 6143793-8 (Version None)
Quarter: 2009Q2

REPORT INFORMATION
  Report Type: 
  Country: None (occurrence: None)
  Receive Date: 20090403
  Receipt Date: 20090326
  Transmission Date: 20091009
  Serious: Yes (Hospitalization)
  Sender: FDA-Public Use
  Company Number: PHHY2009DE10164

PATIENT
  Sex: Male

DRUGS (3)
  1. STALEVO 100 [Suspect]
     Indication: PARKINSON'S DISEASE
     Dosage: 400 MG
     Route: 048
     Dates: start: 20081127, end: 20090215
  2. TREMARIL [Concomitant]
     Dosage: 3X1 TABLET
     Dates: start: 20081211, end: 20090215
  3. OMEPRAZOL [Concomitant]
     Dosage: 1X1 TABLET
     Dates: start: 20090108

REACTIONS (4)
  - DYSPEPSIA [None]
  - GASTROINTESTINAL HAEMORRHAGE [None]
  - HAEMOPTYSIS [None]
  - HEADACHE [None]
